FAERS Safety Report 5673722-2 (Version None)
Quarter: 2008Q1

REPORT INFORMATION
  Report Type: 
  Country: None (occurrence: None)
  Receive Date: 20080319
  Receipt Date: 20080310
  Transmission Date: 20080703
  Serious: Yes (Hospitalization)
  Sender: FDA-Public Use
  Company Number: PH-MERCK-0803PHL00012

PATIENT
  Age: 72 Year
  Sex: Male

DRUGS (8)
  1. JANUVIA [Suspect]
     Indication: DIABETES MELLITUS
     Route: 048
     Dates: start: 20070501, end: 20071001
  2. METFORMIN [Concomitant]
     Indication: DIABETES MELLITUS
     Route: 048
  3. GLIPIZIDE [Concomitant]
     Indication: DIABETES MELLITUS
     Route: 048
  4. VOGLIBOSE [Concomitant]
     Indication: DIABETES MELLITUS
     Route: 065
  5. PERINDOPRIL ARGININE [Concomitant]
     Indication: HYPERTENSION
     Route: 048
     Dates: start: 20060101
  6. CLOPIDOGREL BISULFATE [Concomitant]
     Indication: CARDIOVASCULAR DISORDER
     Route: 048
     Dates: start: 20060101
  7. ATORVASTATIN CALCIUM [Concomitant]
     Indication: DYSLIPIDAEMIA
     Route: 048
     Dates: start: 20060101
  8. FUROSEMIDE [Concomitant]
     Indication: HYPERTENSION
     Route: 048
     Dates: start: 20060101

REACTIONS (4)
  - CUTANEOUS VASCULITIS [None]
  - OEDEMA [None]
  - RASH PRURITIC [None]
  - SKIN LESION [None]
